FAERS Safety Report 6843582-2 (Version None)
Quarter: 2010Q2

REPORT INFORMATION
  Report Type: 
  Country: None (occurrence: None)
  Receive Date: 20100629
  Receipt Date: 20100423
  Transmission Date: 20101027
  Serious: No
  Sender: FDA-Public Use
  Company Number: US-WYE-H14811410

PATIENT
  Age: 51 Year
  Sex: Female
  Weight: 63.56 kg

DRUGS (5)
  1. PRISTIQ [Suspect]
     Indication: DEPRESSION
     Dosage: 50 MG 1X PER 1 DAY, ORAL 50 MG 1X PER 1 DAY, ORAL 50 MG 1X PER 2 DAY, ORAL
     Route: 048
     Dates: start: 20090901, end: 20100401
  2. PRISTIQ [Suspect]
     Indication: DEPRESSION
     Dosage: 50 MG 1X PER 1 DAY, ORAL 50 MG 1X PER 1 DAY, ORAL 50 MG 1X PER 2 DAY, ORAL
     Route: 048
     Dates: start: 20100401, end: 20100401
  3. PRISTIQ [Suspect]
     Indication: DEPRESSION
     Dosage: 50 MG 1X PER 1 DAY, ORAL 50 MG 1X PER 1 DAY, ORAL 50 MG 1X PER 2 DAY, ORAL
     Route: 048
     Dates: start: 20100401
  4. HYDROCODONE BITARTRATE [Concomitant]
  5. ALPRAZOLAM [Concomitant]

REACTIONS (5)
  - BLOOD PRESSURE ABNORMAL [None]
  - DRUG WITHDRAWAL SYNDROME [None]
  - FEELING ABNORMAL [None]
  - HEADACHE [None]
  - HEART RATE INCREASED [None]
